FAERS Safety Report 25858437 (Version 1)
Quarter: 2025Q3

REPORT INFORMATION
  Report Type: Spontaneous
  Country: US (occurrence: US)
  Receive Date: 20250929
  Receipt Date: 20250929
  Transmission Date: 20251021
  Serious: No
  Sender: CSL Plasma
  Company Number: US-CSLP-56000960451-V11745172-26

PATIENT
  Age: 29 Year
  Sex: Female

DRUGS (3)
  1. ANTICOAGULANT SODIUM CITRATE [Suspect]
     Active Substance: SODIUM CITRATE
     Indication: Anticoagulant therapy
     Route: 050
     Dates: start: 20250920, end: 20250920
  2. Mirena, prescribed non-hormone Copper IUD [Concomitant]
     Indication: Contraception
  3. B12 [Concomitant]
     Indication: Product used for unknown indication

REACTIONS (3)
  - Feeling hot [Recovered/Resolved]
  - Chest pain [Recovered/Resolved]
  - Chest discomfort [Recovered/Resolved]

NARRATIVE: CASE EVENT DATE: 20250920
